FAERS Safety Report 7651285-X (Version None)
Quarter: 2011Q3

REPORT INFORMATION
  Report Type: 
  Country: None (occurrence: None)
  Receive Date: 20110802
  Receipt Date: 20110725
  Transmission Date: 20111222
  Serious: Yes (Other)
  Sender: FDA-Public Use
  Company Number: US-ASTRAZENECA-2011SE44524

PATIENT
  Age: 86 Year
  Sex: Male

DRUGS (18)
  1. VALIUM [Concomitant]
     Dosage: ONE TAB ORALLY Q8 HOURS PRN
     Route: 048
     Dates: start: 20110524
  2. VENTOLIN HFA [Concomitant]
     Dosage: 108 MCG/ACT, 2 PUFFS Q6 HOURS
     Route: 055
     Dates: start: 20100108
  3. CITALOPRAM HYDROBROMIDE [Concomitant]
     Route: 048
     Dates: start: 20090825
  4. SPIRIVA [Concomitant]
     Route: 048
     Dates: start: 20110720
  5. LOVASTATIN [Concomitant]
     Route: 048
     Dates: start: 20100830
  6. METOPROLOL TARTRATE [Concomitant]
     Route: 048
     Dates: start: 20110209
  7. SYMBICORT [Suspect]
     Dosage: 160/4.5 MCG, ONE PUFF TWICE DAILY
     Route: 055
     Dates: start: 20100108
  8. CARDURA [Concomitant]
     Route: 048
     Dates: start: 20110720
  9. FUROSEMIDE [Concomitant]
     Indication: SWELLING
     Dosage: 20 MG, ONE EVERY DAY, AS NEEDED
     Route: 048
     Dates: start: 20110509
  10. ISOSORBIDE MONONITRATE CR [Concomitant]
     Route: 048
     Dates: start: 20101029
  11. HALCION [Concomitant]
     Dosage: 0.25 MG, 1 EVERY DAY AT BED TIME, AS NEEDED
     Route: 048
     Dates: start: 20110720
  12. NOVOLIN R [Concomitant]
     Dosage: 100 UNIT/ML BASED ON BLOOD GLUSOCE
     Dates: start: 20110204
  13. RITUXIMAB [Concomitant]
     Dosage: 10 MG/ ML, ONE INJECTION WEEKLY
     Route: 042
     Dates: start: 20100108
  14. ONETOUCH ULTRA TEST [Concomitant]
     Dosage: TO TEST BLOOD SUGAR BID
     Dates: start: 20110405
  15. CHLORHEXIDINE GLUCONATE [Concomitant]
     Dosage: 15 ML SWISH AND PSIT QID
     Dates: start: 20110701
  16. NOVOLIN 70/30 [Concomitant]
     Dosage: 70-30% SUSP 15 UNITS IN THE MORNING AND 23 UNITS IN THE EVENING
     Route: 058
     Dates: start: 20110513
  17. ASPIRIN [Concomitant]
     Route: 048
     Dates: start: 20090316
  18. MENS MULTIPLUS [Concomitant]
     Route: 048
     Dates: start: 20090316

REACTIONS (15)
  - GENERALISED ANXIETY DISORDER [None]
  - ESSENTIAL HYPERTENSION [None]
  - MYOCARDIAL ISCHAEMIA [None]
  - CATARACT [None]
  - ANAEMIA [None]
  - NON-HODGKIN'S LYMPHOMA [None]
  - TYPE 2 DIABETES MELLITUS [None]
  - IMPAIRED HEALING [None]
  - DEPRESSION [None]
  - INSOMNIA [None]
  - ANAL HAEMORRHAGE [None]
  - PERIPHERAL VASCULAR DISORDER [None]
  - TONGUE ULCERATION [None]
  - RECTAL HAEMORRHAGE [None]
  - SWELLING [None]
